FAERS Safety Report 19593638 (Version 3)
Quarter: 2021Q3

REPORT INFORMATION
  Report Type: Other
  Country: JP (occurrence: JP)
  Receive Date: 20210722
  Receipt Date: 20210924
  Transmission Date: 20211014
  Serious: Yes (Other)
  Sender: FDA-Public Use
  Company Number: JP-ROCHE-2873560

PATIENT
  Age: 60 Year
  Sex: Female

DRUGS (1)
  1. ROZLYTREK [Suspect]
     Active Substance: ENTRECTINIB
     Indication: INVASIVE BREAST CARCINOMA
     Route: 048

REACTIONS (2)
  - Syncope [Unknown]
  - Metastasis [Unknown]
